FAERS Safety Report 16137394 (Version 1)
Quarter: 2019Q1

REPORT INFORMATION
  Report Type: Report from Study
  Country: IT (occurrence: IT)
  Receive Date: 20190330
  Receipt Date: 20190330
  Transmission Date: 20190418
  Serious: No
  Sender: FDA-Public Use
  Company Number: IT-ROCHE-694476

PATIENT
  Age: 53 Year
  Sex: Female
  Weight: 81 kg

DRUGS (9)
  1. TRASTUZUMAB. [Suspect]
     Active Substance: TRASTUZUMAB
     Dosage: THERAPY TEMPORARILY INTERRUPTED
     Route: 042
     Dates: start: 20100531, end: 20110125
  2. CARVEDILOL. [Concomitant]
     Active Substance: CARVEDILOL
     Route: 065
  3. PLACEBO [Suspect]
     Active Substance: UNSPECIFIED INGREDIENT
     Dosage: MAINTENANCE DOSE FOR SUBSEQUENT CYCLES.
     Route: 042
     Dates: start: 20090604, end: 20100322
  4. PLACEBO [Suspect]
     Active Substance: UNSPECIFIED INGREDIENT
     Dosage: DATE OF LAST DOSE PRIOR TO SAE: 21 JANUARY 2011, TEHRAPY TEMPORARILY INTERRUPTED
     Route: 042
     Dates: start: 20100531, end: 20110125
  5. ESCITALOPRAM [Concomitant]
     Active Substance: ESCITALOPRAM OXALATE
     Route: 065
  6. PLACEBO [Suspect]
     Active Substance: UNSPECIFIED INGREDIENT
     Indication: HER-2 POSITIVE BREAST CANCER
     Dosage: FREQUENCY REPORTED AS Q 21.?LOADING DOSE FOR CYCLE 1
     Route: 042
  7. LISINOPRIL. [Concomitant]
     Active Substance: LISINOPRIL
     Route: 065
  8. TRASTUZUMAB. [Suspect]
     Active Substance: TRASTUZUMAB
     Indication: BREAST CANCER METASTATIC
     Dosage: FREQUENCY REPORTED AS Q 21.?LOADING DOSE OF 8 MG/KG FOR CYCLE 1
     Route: 042
  9. TRASTUZUMAB. [Suspect]
     Active Substance: TRASTUZUMAB
     Dosage: MAINTENANCE DOSE OF 6 MG/KG FOR SUBSEQUENT CYCLES.
     Route: 042
     Dates: start: 20090605, end: 20100322

REACTIONS (1)
  - Left ventricular dysfunction [Not Recovered/Not Resolved]

NARRATIVE: CASE EVENT DATE: 20100322
